FAERS Safety Report 17102420 (Version 1)
Quarter: 2019Q4

REPORT INFORMATION
  Report Type: Spontaneous
  Country: US (occurrence: US)
  Receive Date: 20191202
  Receipt Date: 20191202
  Transmission Date: 20200122
  Serious: No
  Sender: FDA-Public Use
  Company Number: US-PTC THERAPEUTICS, INC.-US-2019PTC001339

PATIENT
  Age: 6 Year
  Sex: Male

DRUGS (2)
  1. EMFLAZA [Suspect]
     Active Substance: DEFLAZACORT
     Indication: BECKER^S MUSCULAR DYSTROPHY
     Dosage: 4 ML, WEEKEND DOSING, TWICE A WEEK
     Route: 048
     Dates: start: 20190511
  2. EMFLAZA [Suspect]
     Active Substance: DEFLAZACORT
     Indication: DUCHENNE MUSCULAR DYSTROPHY
     Dosage: 3.8 ML, EVER SATURDAY AND SUNDAY
     Route: 048

REACTIONS (7)
  - Eye disorder [Unknown]
  - Decreased appetite [Unknown]
  - Off label use [Unknown]
  - Headache [Unknown]
  - Pallor [Unknown]
  - Lethargy [Unknown]
  - Abnormal behaviour [Unknown]

NARRATIVE: CASE EVENT DATE: 20191001
